FAERS Safety Report 17746871 (Version 3)
Quarter: 2021Q4

REPORT INFORMATION
  Report Type: Spontaneous
  Country: IN (occurrence: IN)
  Receive Date: 20200505
  Receipt Date: 20211014
  Transmission Date: 20220303
  Serious: Yes (Life-Threatening)
  Sender: FDA-Public Use
  Company Number: NVSC2020IN121256

PATIENT
  Age: 33 Year
  Sex: Female
  Weight: 52 kg

DRUGS (2)
  1. TASIGNA [Suspect]
     Active Substance: NILOTINIB
     Indication: Philadelphia positive acute lymphocytic leukaemia
     Dosage: 200 MG, BID
     Route: 048
     Dates: start: 20120101
  2. TASIGNA [Suspect]
     Active Substance: NILOTINIB
     Dosage: 150 MG, BID
     Route: 048

REACTIONS (7)
  - Seizure [Recovered/Resolved]
  - Dengue fever [Recovered/Resolved]
  - Blindness [Recovered/Resolved]
  - Premature rupture of membranes [Unknown]
  - Exposure during pregnancy [Recovered/Resolved]
  - Asthenia [Recovered/Resolved]
  - Hypertension [Recovered/Resolved]

NARRATIVE: CASE EVENT DATE: 20190918
